FAERS Safety Report 25047432 (Version 1)
Quarter: 2025Q1

REPORT INFORMATION
  Report Type: Spontaneous
  Country: CA (occurrence: CA)
  Receive Date: 20250306
  Receipt Date: 20250306
  Transmission Date: 20250409
  Serious: Yes (Life-Threatening, Hospitalization, Other)
  Sender: PFIZER
  Company Number: CA-PFIZER INC-202500050013

PATIENT
  Age: 52 Year
  Sex: Female

DRUGS (2)
  1. PREMARIN [Suspect]
     Active Substance: ESTROGENS, CONJUGATED
  2. NAPROXEN SODIUM\SUMATRIPTAN SUCCINATE [Suspect]
     Active Substance: NAPROXEN SODIUM\SUMATRIPTAN SUCCINATE
     Indication: Migraine
     Route: 048

REACTIONS (3)
  - Coma [Unknown]
  - Loss of consciousness [Unknown]
  - Contraindicated product prescribed [Unknown]
